FAERS Safety Report 4978476-0 (Version None)
Quarter: 2006Q2

REPORT INFORMATION
  Report Type: 
  Country: None (occurrence: None)
  Receive Date: 20060420
  Receipt Date: 20060410
  Transmission Date: 20061013
  Serious: Yes (Hospitalization)
  Sender: FDA-Public Use
  Company Number: FR-ABBOTT-06P-056-0330301-00

PATIENT
  Age: 40 Year
  Sex: Female

DRUGS (6)
  1. DEPAKOTE [Suspect]
     Indication: DRUG USE FOR UNKNOWN INDICATION
     Route: 048
     Dates: start: 20060217, end: 20060220
  2. CYAMEMAZINE [Suspect]
     Indication: DRUG USE FOR UNKNOWN INDICATION
     Route: 048
     Dates: start: 20060217, end: 20060220
  3. CYAMEMAZINE [Suspect]
     Route: 048
     Dates: start: 20060213, end: 20060217
  4. OLANZAPINE [Suspect]
     Indication: DRUG USE FOR UNKNOWN INDICATION
     Route: 048
     Dates: start: 20060217, end: 20060220
  5. OLANZAPINE [Suspect]
     Dates: start: 20060311
  6. LITHIUM CARBONATE [Concomitant]
     Indication: DRUG USE FOR UNKNOWN INDICATION
     Dates: start: 20060224

REACTIONS (5)
  - BLOOD PRESSURE DECREASED [None]
  - CYTOLYTIC HEPATITIS [None]
  - FATIGUE [None]
  - HYPERTHERMIA [None]
  - PROTHROMBIN TIME RATIO DECREASED [None]
